FAERS Safety Report 21419041 (Version 1)
Quarter: 2022Q4

REPORT INFORMATION
  Report Type: Spontaneous
  Country: US (occurrence: US)
  Receive Date: 20221006
  Receipt Date: 20221006
  Transmission Date: 20230113
  Serious: No
  Sender: FDA-Public Use
  Company Number: US-009507513-2209USA009587

PATIENT
  Sex: Female
  Weight: 71.429 kg

DRUGS (1)
  1. JANUMET XR [Suspect]
     Active Substance: METFORMIN HYDROCHLORIDE\SITAGLIPTIN PHOSPHATE
     Indication: Diabetes mellitus
     Dosage: 100/1000, 8 D
     Route: 048
     Dates: start: 20220817

REACTIONS (5)
  - Anxiety [Unknown]
  - Blood glucose increased [Unknown]
  - Product dose omission issue [Unknown]
  - Product availability issue [Unknown]
  - Product use issue [Unknown]

NARRATIVE: CASE EVENT DATE: 20220101
